FAERS Safety Report 5376088-0 (Version None)
Quarter: 2007Q3

REPORT INFORMATION
  Report Type: 
  Country: None (occurrence: None)
  Receive Date: 20070702
  Receipt Date: 20070626
  Transmission Date: 20080115
  Serious: Yes (Hospitalization)
  Sender: FDA-Public Use
  Company Number: A0637254B

PATIENT
  Age: 32 Year
  Sex: Female

DRUGS (2)
  1. TRIZIVIR [Suspect]
     Indication: HIV INFECTION
     Dosage: 2TAB PER DAY
     Route: 048
     Dates: start: 20060822
  2. UNKNOWN ANTIRETROVIRAL TREATMENT [Concomitant]

REACTIONS (7)
  - ADVERSE EVENT [None]
  - AMNIOTIC FLUID INDEX ABNORMAL [None]
  - CAESAREAN SECTION [None]
  - DRUG EXPOSURE DURING PREGNANCY [None]
  - POLYHYDRAMNIOS [None]
  - RESPIRATORY DISORDER [None]
  - UTERINE CONTRACTIONS DURING PREGNANCY [None]
